FAERS Safety Report 20224353 (Version 1)
Quarter: 2021Q4

REPORT INFORMATION
  Report Type: Report from Study
  Country: US (occurrence: US)
  Receive Date: 20211223
  Receipt Date: 20211223
  Transmission Date: 20220303
  Serious: Yes (Hospitalization)
  Sender: FDA-Public Use
  Company Number: US-TEVA-2021-US-1990229

PATIENT
  Age: 20 Year
  Sex: Female
  Weight: 124 kg

DRUGS (2)
  1. ETOPOSIDE [Suspect]
     Active Substance: ETOPOSIDE
     Indication: Osteosarcoma
     Dosage: DAY 1-3 OF EVERY 21 DAY CYCLE
     Route: 042
     Dates: start: 20210922
  2. IFOSFAMIDE [Suspect]
     Active Substance: IFOSFAMIDE
     Indication: Osteosarcoma
     Dosage: DAY 1-3 OF EVERY 21 DAY CYCLE
     Route: 042
     Dates: start: 20210923

REACTIONS (2)
  - Anaphylactic reaction [Recovered/Resolved]
  - Vascular device infection [Recovered/Resolved]

NARRATIVE: CASE EVENT DATE: 20210923
